FAERS Safety Report 10907597 (Version 2)
Quarter: 2015Q2

REPORT INFORMATION
  Report Type: Spontaneous
  Country: US (occurrence: US)
  Receive Date: 20150312
  Receipt Date: 20150528
  Transmission Date: 20150821
  Serious: No
  Sender: FDA-Public Use
  Company Number: US-PFIZER INC-2015088501

PATIENT
  Age: 81 Year
  Sex: Female
  Weight: 42 kg

DRUGS (9)
  1. FLAGYL [Suspect]
     Active Substance: METRONIDAZOLE\METRONIDAZOLE HYDROCHLORIDE
     Indication: CLOSTRIDIUM DIFFICILE INFECTION
     Dosage: 20 MG, 1X/DAY(VARIED DOSAGE OVER ALMOST 8-12 MONTHS.)
     Route: 048
     Dates: start: 201312, end: 2014
  2. FLAGYL [Suspect]
     Active Substance: METRONIDAZOLE\METRONIDAZOLE HYDROCHLORIDE
     Dosage: 10 MG, 2X/DAY
     Route: 048
     Dates: start: 201312, end: 2014
  3. NORVASC [Concomitant]
     Active Substance: AMLODIPINE BESYLATE
     Indication: BLOOD PRESSURE
     Dosage: 2.5 MG, DAILY
     Route: 048
     Dates: start: 2000
  4. ATENOLOL. [Concomitant]
     Active Substance: ATENOLOL
     Dosage: UNK
     Dates: start: 1989
  5. COZAAR [Concomitant]
     Active Substance: LOSARTAN POTASSIUM
     Dosage: 15 MG, DAILY
     Route: 048
     Dates: start: 2005
  6. ATENOLOL. [Concomitant]
     Active Substance: ATENOLOL
     Indication: BLOOD PRESSURE
     Dosage: 25 MG, DAILY
     Route: 048
     Dates: start: 1989
  7. COZAAR [Concomitant]
     Active Substance: LOSARTAN POTASSIUM
     Dosage: UNK
  8. KLOR-CON [Concomitant]
     Active Substance: POTASSIUM CHLORIDE
     Dosage: 10 MEQ, DAILY
     Route: 048
     Dates: start: 2005
  9. LEVOTHYROXINE [Concomitant]
     Active Substance: LEVOTHYROXINE
     Indication: HYPOTHYROIDISM
     Dosage: 25 ?G/KG, DAILY
     Route: 048
     Dates: start: 2005

REACTIONS (3)
  - Malaise [Recovered/Resolved]
  - Incorrect drug administration duration [Recovered/Resolved]
  - Infection [Unknown]

NARRATIVE: CASE EVENT DATE: 201312
